FAERS Safety Report 17036831 (Version 1)
Quarter: 2019Q4

REPORT INFORMATION
  Report Type: Spontaneous
  Country: GB (occurrence: GB)
  Receive Date: 20191115
  Receipt Date: 20191115
  Transmission Date: 20200122
  Serious: Yes (Hospitalization, Other)
  Sender: FDA-Public Use
  Company Number: GB-VIIV HEALTHCARE LIMITED-GB2019206968

PATIENT
  Age: 36 Year
  Sex: Female
  Weight: 118 kg

DRUGS (4)
  1. SERTRALINE [Suspect]
     Active Substance: SERTRALINE HYDROCHLORIDE
     Indication: DEPRESSION
     Dosage: 100 MG, QD
     Route: 048
     Dates: start: 20190426, end: 20191025
  2. COBICISTAT [Suspect]
     Active Substance: COBICISTAT
     Indication: HIV TEST POSITIVE
     Dosage: 150 MG, UNK
     Route: 048
     Dates: start: 20160101
  3. DARUNAVIR [Suspect]
     Active Substance: DARUNAVIR
     Indication: HIV TEST POSITIVE
     Dosage: 800 MG, UNK
     Route: 048
  4. DOLUTEGRAVIR [Suspect]
     Active Substance: DOLUTEGRAVIR
     Indication: HIV TEST POSITIVE
     Dosage: 50 MG, UNK
     Route: 048

REACTIONS (2)
  - Serotonin syndrome [Recovering/Resolving]
  - Product prescribing error [Unknown]
